FAERS Safety Report 7000727-1 (Version None)
Quarter: 2010Q3

REPORT INFORMATION
  Report Type: 
  Country: None (occurrence: None)
  Receive Date: 20100920
  Receipt Date: 20100319
  Transmission Date: 20110219
  Serious: No
  Sender: FDA-Public Use
  Company Number: US-ASTRAZENECA-2010SE12191

PATIENT
  Sex: Female
  Weight: 63.5 kg

DRUGS (4)
  1. SEROQUEL XR [Suspect]
     Indication: DEPRESSION
     Route: 048
     Dates: start: 20100301, end: 20100301
  2. METOPROLOL [Concomitant]
     Indication: HYPERTENSION
  3. XANAX [Concomitant]
     Indication: ANXIETY
  4. BENECAR [Concomitant]
     Indication: HYPERTENSION

REACTIONS (2)
  - FATIGUE [None]
  - SOMNOLENCE [None]
